FAERS Safety Report 5356514-3 (Version None)
Quarter: 2007Q2

REPORT INFORMATION
  Report Type: 
  Country: None (occurrence: None)
  Receive Date: 20070530
  Receipt Date: 20061016
  Transmission Date: 20071010
  Serious: Yes (Hospitalization)
  Sender: FDA-Public Use
  Company Number: US200608005950

PATIENT
  Age: 49 Year
  Sex: Male
  Weight: 113.4 kg

DRUGS (4)
  1. ZYPREXA [Suspect]
     Dosage: 5 MG
     Dates: start: 20020801, end: 20040801
  2. QUETIAPINE FUMARATE [Concomitant]
  3. BUPROPION HCL [Concomitant]
  4. SERZONE [Concomitant]

REACTIONS (6)
  - BLOOD TRIGLYCERIDES INCREASED [None]
  - DIABETES MELLITUS [None]
  - HYPERTENSION [None]
  - METABOLIC DISORDER [None]
  - OBESITY [None]
  - SYNCOPE [None]
